FAERS Safety Report 13783039 (Version 1)
Quarter: 2017Q3

REPORT INFORMATION
  Report Type: Spontaneous
  Country: US (occurrence: US)
  Receive Date: 20170724
  Receipt Date: 20170724
  Transmission Date: 20171127
  Serious: No
  Sender: FDA-Public Use
  Company Number: US-GLAXOSMITHKLINE-US2017107904

PATIENT
  Age: 54 Year
  Sex: Female

DRUGS (4)
  1. NICODERM CQ [Suspect]
     Active Substance: NICOTINE
     Indication: SMOKING CESSATION THERAPY
     Dosage: 21 MG, UNK
  2. NICORETTE [Suspect]
     Active Substance: NICOTINE
     Indication: SMOKING CESSATION THERAPY
     Dosage: 2 MG, UNK
  3. NICORETTE [Suspect]
     Active Substance: NICOTINE
     Indication: SMOKING CESSATION THERAPY
     Dosage: 4 MG, UNK
  4. NICORETTE [Suspect]
     Active Substance: NICOTINE
     Indication: SMOKING CESSATION THERAPY
     Dosage: UNK

REACTIONS (12)
  - Nervousness [Unknown]
  - Psychomotor hyperactivity [Unknown]
  - Abdominal pain upper [Recovered/Resolved]
  - Dysgeusia [Not Recovered/Not Resolved]
  - Musculoskeletal chest pain [Unknown]
  - Mouth swelling [Not Recovered/Not Resolved]
  - Lymphadenopathy [Recovered/Resolved]
  - Sensitivity of teeth [Not Recovered/Not Resolved]
  - Overdose [Unknown]
  - Anxiety [Not Recovered/Not Resolved]
  - Dyspepsia [Unknown]
  - Underdose [Unknown]
